FAERS Safety Report 8868628 (Version 1)
Quarter: 2012Q4

REPORT INFORMATION
  Report Type: 
  Country: US (occurrence: US)
  Receive Date: 20121026
  Receipt Date: 20121026
  Transmission Date: 20130627
  Serious: No
  Sender: FDA-Public Use
  Company Number: US-AMGEN-USASP2012046180

PATIENT
  Sex: Female

DRUGS (16)
  1. ENBREL [Suspect]
     Indication: PRODUCT USED FOR UNKNOWN INDICATION
     Dosage: 50 mg, qwk
     Route: 058
  2. AMLODIPINE                         /00972402/ [Concomitant]
     Dosage: 5 mg, UNK
  3. METHOTREXATE [Concomitant]
     Dosage: 2.5 mg, UNK
  4. PREDNISOLONE [Concomitant]
     Dosage: 5 mg, UNK
  5. TRAMADOL [Concomitant]
     Dosage: 50 mg, UNK
  6. OMEPRAZOLE [Concomitant]
     Dosage: 20 mg, UNK
  7. LEVOTHYROXINE [Concomitant]
     Dosage: 75 mug, UNK
  8. SPIRIVA [Concomitant]
  9. LOSARTAN POTASSIUM [Concomitant]
     Dosage: 25 mg, UNK
  10. CALCITONIN                         /00371903/ [Concomitant]
     Dosage: 200 UNK, UNK
  11. VITAMIN A + D                      /00343801/ [Concomitant]
  12. GINSENG                            /01384001/ [Concomitant]
     Dosage: 100 mg, UNK
  13. FLUOXETINE [Concomitant]
     Dosage: 20 mg, UNK
  14. COLACE [Concomitant]
     Dosage: 100 mg, UNK
  15. MUCINEX DM [Concomitant]
     Dosage: 60-1200
  16. ASPIRIN (E.C.) [Concomitant]
     Dosage: 81 mg, UNK

REACTIONS (1)
  - Cough [Unknown]
